FAERS Safety Report 7580337-8 (Version None)
Quarter: 2011Q2

REPORT INFORMATION
  Report Type: 
  Country: None (occurrence: None)
  Receive Date: 20110629
  Receipt Date: 20110615
  Transmission Date: 20111010
  Serious: Yes (Death)
  Sender: FDA-Public Use
  Company Number: IE-ROCHE-782477

PATIENT
  Sex: Female

DRUGS (3)
  1. HERCEPTIN [Suspect]
     Indication: BREAST CANCER
     Route: 065
     Dates: start: 20091101
  2. CARBOPLATIN [Suspect]
     Indication: BREAST CANCER
     Route: 065
     Dates: start: 20091101
  3. TAXOTERE [Suspect]
     Route: 065
     Dates: start: 20091101

REACTIONS (3)
  - SEPTIC SHOCK [None]
  - NEUTROPENIC COLITIS [None]
  - NECROTISING FASCIITIS [None]
